FAERS Safety Report 7214059-X (Version None)
Quarter: 2011Q1

REPORT INFORMATION
  Report Type: 
  Country: None (occurrence: None)
  Receive Date: 20110107
  Receipt Date: 20101228
  Transmission Date: 20110831
  Serious: No
  Sender: FDA-Public Use
  Company Number: US-BIOGENIDEC-2010BI045165

PATIENT
  Age: 69 Year
  Sex: Female

DRUGS (2)
  1. AVONEX [Suspect]
     Route: 030
     Dates: start: 20010703
  2. AVONEX [Suspect]
     Indication: MULTIPLE SCLEROSIS
     Route: 030

REACTIONS (8)
  - INJECTION SITE ERYTHEMA [None]
  - PAIN [None]
  - MUSCLE SPASMS [None]
  - SENSORY DISTURBANCE [None]
  - FEELING ABNORMAL [None]
  - MYALGIA [None]
  - ASTHENIA [None]
  - MUSCULAR WEAKNESS [None]
